FAERS Safety Report 13787971 (Version 1)
Quarter: 2017Q3

REPORT INFORMATION
  Report Type: Spontaneous
  Country: US (occurrence: US)
  Receive Date: 20170725
  Receipt Date: 20170725
  Transmission Date: 20171127
  Serious: No
  Sender: FDA-Public Use
  Company Number: US-JNJFOC-20170518944

PATIENT

DRUGS (3)
  1. DARZALEX [Suspect]
     Active Substance: DARATUMUMAB
     Indication: PLASMA CELL MYELOMA
     Route: 042
  2. DEXAMETHASONE. [Concomitant]
     Active Substance: DEXAMETHASONE
  3. POMALIDOMIDE [Concomitant]
     Active Substance: POMALIDOMIDE

REACTIONS (3)
  - Dyspnoea [Unknown]
  - Infusion related reaction [Unknown]
  - Platelet count decreased [Unknown]
